FAERS Safety Report 22036039 (Version 3)
Quarter: 2023Q1

REPORT INFORMATION
  Report Type: Report from Study
  Country: QA (occurrence: QA)
  Receive Date: 20230224
  Receipt Date: 20230330
  Transmission Date: 20230418
  Serious: Yes (Death, Hospitalization, Other)
  Sender: FDA-Public Use
  Company Number: QA-002147023-NVSC2023QA033721

PATIENT

DRUGS (3)
  1. RUXOLITINIB [Suspect]
     Active Substance: RUXOLITINIB
     Indication: Chronic graft versus host disease
     Dosage: 10 MG, BID
     Route: 048
     Dates: start: 201707, end: 201904
  2. RUXOLITINIB [Suspect]
     Active Substance: RUXOLITINIB
     Indication: Musculoskeletal stiffness
  3. RUXOLITINIB [Suspect]
     Active Substance: RUXOLITINIB
     Indication: Muscle tightness

REACTIONS (7)
  - Cerebral infarction [Unknown]
  - COVID-19 [Fatal]
  - COVID-19 pneumonia [Unknown]
  - Gastrointestinal haemorrhage [Unknown]
  - Haemorrhage [Unknown]
  - Pulmonary embolism [Unknown]
  - Renal failure [Unknown]

NARRATIVE: CASE EVENT DATE: 20210401
